FAERS Safety Report 13319954 (Version 1)
Quarter: 2017Q1

REPORT INFORMATION
  Report Type: Spontaneous
  Country: FR (occurrence: FR)
  Receive Date: 20170310
  Receipt Date: 20170310
  Transmission Date: 20170428
  Serious: Yes (Hospitalization)
  Sender: FDA-Public Use
  Company Number: FR-ASTRAZENECA-2017SE24784

PATIENT
  Age: 31214 Day
  Sex: Male

DRUGS (7)
  1. INEXIUM [Suspect]
     Active Substance: ESOMEPRAZOLE
     Route: 048
     Dates: end: 20170127
  2. TRAMADOL. [Concomitant]
     Active Substance: TRAMADOL
  3. COUMADINE [Suspect]
     Active Substance: WARFARIN SODIUM
     Route: 065
     Dates: end: 20170127
  4. LYRICA [Concomitant]
     Active Substance: PREGABALIN
  5. XATRAL [Concomitant]
     Active Substance: ALFUZOSIN
  6. FUMAFER [Concomitant]
     Active Substance: FERROUS FUMARATE
  7. CETIRIZINE [Concomitant]
     Active Substance: CETIRIZINE HYDROCHLORIDE

REACTIONS (3)
  - Rectal haemorrhage [Recovered/Resolved]
  - Diverticulum [Unknown]
  - Haemorrhagic anaemia [Recovered/Resolved]

NARRATIVE: CASE EVENT DATE: 20170127
